FAERS Safety Report 10667838 (Version 2)
Quarter: 2014Q4

REPORT INFORMATION
  Report Type: Spontaneous
  Country: HU (occurrence: HU)
  Receive Date: 20141222
  Receipt Date: 20141222
  Transmission Date: 20150529
  Serious: Yes (Hospitalization, Other)
  Sender: FDA-Public Use
  Company Number: HU-BAXTER-2014BAX006191

PATIENT
  Age: 7 Month
  Sex: Male
  Weight: 11.9 kg

DRUGS (3)
  1. ADVATE [Suspect]
     Active Substance: ANTIHEMOPHILIC FACTOR, HUMAN RECOMBINANT
     Indication: FACTOR VIII DEFICIENCY
     Route: 042
  2. ADVATE [Suspect]
     Active Substance: ANTIHEMOPHILIC FACTOR, HUMAN RECOMBINANT
     Indication: TRAUMATIC INTRACRANIAL HAEMORRHAGE
     Route: 042
     Dates: start: 20140101
  3. NOVOSEVEN [Concomitant]
     Active Substance: COAGULATION FACTOR VIIA RECOMBINANT HUMAN
     Indication: FACTOR VIII DEFICIENCY
     Route: 065
     Dates: start: 20140211

REACTIONS (3)
  - Factor VIII inhibition [Not Recovered/Not Resolved]
  - Staphylococcal infection [Unknown]
  - Device related infection [Unknown]

NARRATIVE: CASE EVENT DATE: 20140117
